FAERS Safety Report 5291399-5 (Version None)
Quarter: 2007Q2

REPORT INFORMATION
  Report Type: 
  Country: None (occurrence: None)
  Receive Date: 20070402
  Receipt Date: 20070319
  Transmission Date: 20071010
  Serious: Yes (Hospitalization)
  Sender: FDA-Public Use
  Company Number: FSC-0084_2007

PATIENT
  Age: 64 Year
  Sex: Male
  Weight: 78 kg

DRUGS (3)
  1. ISOPTIN [Suspect]
     Indication: HYPERTENSION
     Dosage: DF PO
     Route: 048
  2. PARAFFIN LIQUID [Suspect]
     Dosage: DF PO
     Route: 048
  3. IRBESARTAN [Suspect]
     Indication: HYPERTENSION
     Dosage: DF PO
     Route: 048

REACTIONS (2)
  - CHEST PAIN [None]
  - HYPOPHOSPHATAEMIA [None]
